FAERS Safety Report 12270497 (Version 1)
Quarter: 2016Q2

REPORT INFORMATION
  Report Type: Spontaneous
  Country: US (occurrence: None)
  Receive Date: 20160414
  Receipt Date: 20160414
  Transmission Date: 20160815
  Serious: Yes (Other)
  Sender: FDA-Public Use
  Company Number: None

PATIENT
  Age: 68 Year
  Sex: Female
  Weight: 60.33 kg

DRUGS (2)
  1. PROLIA [Suspect]
     Active Substance: DENOSUMAB
     Indication: OSTEOPOROSIS
     Dosage: TWICE A YEAR GIVEN INTO/UNDER THE SKIN
     Route: 058
     Dates: start: 20160217, end: 20160218
  2. LEVOTHYROXINE. [Concomitant]
     Active Substance: LEVOTHYROXINE

REACTIONS (7)
  - Oropharyngeal pain [None]
  - Ear congestion [None]
  - Sudden hearing loss [None]
  - Swelling [None]
  - Inflammation [None]
  - Ear discomfort [None]
  - Ear infection [None]

NARRATIVE: CASE EVENT DATE: 20160222
